FAERS Safety Report 18157511 (Version 1)
Quarter: 2020Q3

REPORT INFORMATION
  Report Type: Spontaneous
  Country: DE (occurrence: DE)
  Receive Date: 20200817
  Receipt Date: 20200817
  Transmission Date: 20201103
  Serious: Yes (Hospitalization)
  Sender: FDA-Public Use
  Company Number: DE-TEVA-2020-DE-1814023

PATIENT
  Age: 64 Year
  Sex: Female

DRUGS (13)
  1. METHOTREXAT [Suspect]
     Active Substance: METHOTREXATE
     Dosage: 10 MG, TUESDAYS
     Route: 065
  2. CLOPIDOGREL [Concomitant]
     Active Substance: CLOPIDOGREL BISULFATE
     Dosage: 75 MILLIGRAM DAILY;  1?0?0?0
  3. FOLSAURE [Concomitant]
     Active Substance: FOLIC ACID
     Dosage: 5 MG, WEDNESDAYS
  4. RAMIPRIL. [Concomitant]
     Active Substance: RAMIPRIL
     Dosage: 2.5 MILLIGRAM DAILY; 1?0?0?0
  5. SPIRIVA 18 MIKROGRAMM [Concomitant]
     Dosage: 18 MICROGRAM DAILY; 1?0?0?0
  6. FLUTICASON/SALMETEROL [Concomitant]
     Dosage: 2 DOSAGE FORMS DAILY; 50|500 MICROGRAM, 1?0?1?0
  7. INSULIN?ISOPHAN (HUMAN) [Concomitant]
     Dosage: ACCORDING TO THE PATIENT^S SCHEME
  8. ACETYLSALICYLSAURE [Concomitant]
     Active Substance: ASPIRIN
     Dosage: 100 MILLIGRAM DAILY;  0?1?0?0
  9. ATORVASTATIN [Concomitant]
     Active Substance: ATORVASTATIN
     Dosage: 60 MILLIGRAM DAILY;  0?0?1?0
  10. INSULIN GLARGIN [Concomitant]
     Active Substance: INSULIN GLARGINE
  11. JANUMET [Concomitant]
     Active Substance: METFORMIN HYDROCHLORIDE\SITAGLIPTIN PHOSPHATE
     Dosage: 2 DOSAGE FORMS DAILY; 1000|50 MG, 1?0?1?0
  12. ESOMEPRAZOL [Concomitant]
     Active Substance: ESOMEPRAZOLE
     Dosage: 20 MILLIGRAM DAILY;  1?0?0?0
  13. ALLOPURINOL. [Concomitant]
     Active Substance: ALLOPURINOL
     Dosage: 150 MILLIGRAM DAILY; 1?0?0?0

REACTIONS (5)
  - Abdominal pain upper [Unknown]
  - Nausea [Unknown]
  - Abdominal pain [Unknown]
  - Liver function test abnormal [Unknown]
  - Anaemia [Unknown]
